FAERS Safety Report 11617702 (Version 9)
Quarter: 2023Q2

REPORT INFORMATION
  Report Type: Report from Study
  Country: US (occurrence: US)
  Receive Date: 20151009
  Receipt Date: 20230621
  Transmission Date: 20230722
  Serious: Yes (Other)
  Sender: FDA-Public Use
  Company Number: US-JAZZ-2014-US-016417

PATIENT
  Age: 42 Year
  Sex: Male
  Weight: 85.72 kg

DRUGS (17)
  1. XYREM [Suspect]
     Active Substance: SODIUM OXYBATE
     Indication: Narcolepsy
     Dosage: 2.5 GRAM, BID
     Route: 048
     Dates: start: 20141206, end: 2014
  2. XYREM [Suspect]
     Active Substance: SODIUM OXYBATE
     Indication: Cataplexy
     Dosage: DOSE ADJUSTMENTS
     Route: 048
  3. XYREM [Suspect]
     Active Substance: SODIUM OXYBATE
     Indication: Somnolence
     Dosage: 4 GRAM, BID
     Route: 048
     Dates: end: 20150930
  4. XYREM [Suspect]
     Active Substance: SODIUM OXYBATE
     Dosage: UNKNOWN DOSE
     Route: 048
  5. XYREM [Suspect]
     Active Substance: SODIUM OXYBATE
     Dosage: DOSE ADJUSTMENTS
     Route: 048
  6. XYREM [Suspect]
     Active Substance: SODIUM OXYBATE
     Dosage: UNKNOWN DOSE
     Route: 048
  7. TRAMADOL [Suspect]
     Active Substance: TRAMADOL
     Indication: Arthralgia
     Dosage: UNK
     Dates: start: 20121101, end: 201604
  8. CAPSAICIN [Suspect]
     Active Substance: CAPSAICIN
     Indication: Product used for unknown indication
  9. MODAFINIL [Concomitant]
     Active Substance: MODAFINIL
     Indication: Narcolepsy
     Dosage: UNK, BID
     Dates: start: 20140901
  10. MODAFINIL [Concomitant]
     Active Substance: MODAFINIL
     Indication: Somnolence
     Dosage: 100 MG
     Dates: end: 202009
  11. MODAFINIL [Concomitant]
     Active Substance: MODAFINIL
     Dosage: 200 MG
  12. MODAFINIL [Concomitant]
     Active Substance: MODAFINIL
     Dosage: 100 MG
     Dates: end: 202009
  13. MODAFINIL [Concomitant]
     Active Substance: MODAFINIL
     Dosage: 200 MG
  14. PRAVASTATIN SODIUM [Concomitant]
     Active Substance: PRAVASTATIN SODIUM
     Indication: Blood cholesterol increased
     Dosage: UNK
     Dates: end: 202009
  15. PRAVASTATIN SODIUM [Concomitant]
     Active Substance: PRAVASTATIN SODIUM
     Dosage: UNK
     Dates: end: 202009
  16. ATORVASTATIN [Concomitant]
     Active Substance: ATORVASTATIN
     Indication: Product used for unknown indication
  17. ALEVE [Concomitant]
     Active Substance: NAPROXEN SODIUM
     Indication: Product used for unknown indication
     Dosage: UNK
     Dates: start: 20141112

REACTIONS (15)
  - Arthritis [Unknown]
  - Cervical spinal stenosis [Not Recovered/Not Resolved]
  - Fall [Recovered/Resolved]
  - Ligament sprain [Unknown]
  - Restless legs syndrome [Recovering/Resolving]
  - Peripheral nerve palsy [Not Recovered/Not Resolved]
  - Nerve compression [Unknown]
  - Nausea [Unknown]
  - Osteoarthritis [Unknown]
  - Eye irritation [Unknown]
  - Spinal osteoarthritis [Recovered/Resolved]
  - Exostosis [Not Recovered/Not Resolved]
  - Abdominal discomfort [Unknown]
  - Blood pressure increased [Recovered/Resolved]
  - Wrong technique in product usage process [Unknown]

NARRATIVE: CASE EVENT DATE: 20141208
